FAERS Safety Report 7191727-X (Version None)
Quarter: 2010Q4

REPORT INFORMATION
  Report Type: 
  Country: None (occurrence: None)
  Receive Date: 20101223
  Receipt Date: 20100819
  Transmission Date: 20110411
  Serious: No
  Sender: FDA-Public Use
  Company Number: US-AMGEN-KDL432415

PATIENT

DRUGS (17)
  1. ENBREL [Suspect]
     Indication: PRODUCT USED FOR UNKNOWN INDICATION
     Dosage: 50 MG, QWK
     Route: 058
  2. MONTELUKAST [Concomitant]
     Dosage: 10 MG, UNK
  3. HYDROXYCHLOROQUINE SULFATE [Concomitant]
     Dosage: 200 MG, UNK
  4. ZOLPIDEM [Concomitant]
     Dosage: 6.25 MG, UNK
  5. PILOCARPINE [Concomitant]
     Dosage: 5 MG, UNK
  6. METHOTREXATE [Concomitant]
     Dosage: 2.5 MG, UNK
  7. ATENOLOL [Concomitant]
     Dosage: 50 MG, UNK
  8. LISINOPRIL [Concomitant]
     Dosage: 10 MG, UNK
  9. FEXOFENADINE HCL [Concomitant]
     Dosage: 180 MG, UNK
  10. GLIMEPIRIDE [Concomitant]
     Dosage: 4 MG, UNK
  11. METFORMIN HCL [Concomitant]
     Dosage: 500 MG, UNK
  12. HYDROCORTISONE [Concomitant]
     Dosage: 1 %, UNK
  13. HYDROCHLOROTHIAZIDE [Concomitant]
     Dosage: 25 MG, UNK
  14. FLUTICASONE/SALMETEROL [Concomitant]
  15. MULTI-VITAMINS [Concomitant]
     Dosage: UNK UNK, UNK
  16. CALCIUM WITH VITAMIN D [Concomitant]
     Dosage: UNK UNK, UNK
  17. COLECALCIFEROL [Concomitant]
     Dosage: UNK UNK, UNK

REACTIONS (3)
  - ALOPECIA [None]
  - BACTERIAL INFECTION [None]
  - HERPES SIMPLEX [None]
